FAERS Safety Report 6981400-2 (Version None)
Quarter: 2010Q3

REPORT INFORMATION
  Report Type: 
  Country: None (occurrence: None)
  Receive Date: 20100909
  Receipt Date: 20100823
  Transmission Date: 20110219
  Serious: Yes (Other)
  Sender: FDA-Public Use
  Company Number: ACO_01916_2010

PATIENT
  Sex: Female

DRUGS (7)
  1. AMPYRA [Suspect]
     Indication: PRODUCT USED FOR UNKNOWN INDICATION
     Dosage: (10 MG BID, TWO DOSES ORAL)
     Route: 048
     Dates: start: 20100813, end: 20100814
  2. AMANTADINE [Concomitant]
  3. AVONEX [Concomitant]
  4. TIZANIDINE HCL [Concomitant]
  5. LOMOTIL [Concomitant]
  6. CENTRUM SILVER /01292501/ [Concomitant]
  7. VITAMIN C /00008001/ [Concomitant]

REACTIONS (5)
  - CHEST DISCOMFORT [None]
  - DIZZINESS [None]
  - HEADACHE [None]
  - NO THERAPEUTIC RESPONSE [None]
  - TREMOR [None]
